FAERS Safety Report 6452935-6 (Version None)
Quarter: 2009Q4

REPORT INFORMATION
  Report Type: 
  Country: None (occurrence: None)
  Receive Date: 20091124
  Receipt Date: 20091110
  Transmission Date: 20100525
  Serious: Yes (Hospitalization)
  Sender: FDA-Public Use
  Company Number: ES-BAYER-200938700GPV

PATIENT
  Age: 58 Year
  Sex: Male

DRUGS (8)
  1. CAMPATH [Suspect]
     Indication: STEM CELL TRANSPLANT
     Dosage: DAYS -8 TO -4 PRE-TRANSPLANT
     Route: 042
     Dates: start: 20090724, end: 20090728
  2. FLUDARABINE [Suspect]
     Indication: STEM CELL TRANSPLANT
     Route: 042
  3. MELFALAN [Suspect]
     Indication: STEM CELL TRANSPLANT
     Dosage: DAYS -3 AND -2 PRE-TRANSPLANT
     Route: 042
  4. CYCLOSPORINE [Suspect]
     Indication: PROPHYLAXIS AGAINST GRAFT VERSUS HOST DISEASE
     Route: 042
  5. OMEPRAZOLE [Concomitant]
     Indication: PROPHYLAXIS
     Route: 048
     Dates: start: 20090818
  6. ACFOL [Concomitant]
     Indication: VITAMIN SUPPLEMENTATION
     Route: 048
     Dates: start: 20090924
  7. MEGESTROL ACETATE [Concomitant]
     Indication: DECREASED APPETITE
     Route: 048
     Dates: start: 20091021
  8. CYCLOSPORINE [Concomitant]
     Indication: PROPHYLAXIS
     Route: 048
     Dates: start: 20091003

REACTIONS (2)
  - DISORIENTATION [None]
  - HALLUCINATION, VISUAL [None]
